FAERS Safety Report 11137814 (Version 1)
Quarter: 2015Q2

REPORT INFORMATION
  Report Type: Spontaneous
  Country: US (occurrence: US)
  Receive Date: 20150526
  Receipt Date: 20150526
  Transmission Date: 20150821
  Serious: No
  Sender: FDA-Public Use
  Company Number: US-MALLINCKRODT-T201500799

PATIENT
  Sex: Female

DRUGS (1)
  1. H.P. ACTHAR [Suspect]
     Active Substance: CORTICOTROPIN
     Indication: IGA NEPHROPATHY
     Dosage: 80 U BIWEEKLY
     Route: 065
     Dates: start: 20150106

REACTIONS (5)
  - Ageusia [Unknown]
  - Weight increased [Recovered/Resolved]
  - Dyspnoea [Unknown]
  - Nasopharyngitis [Unknown]
  - Myalgia [Unknown]
